FAERS Safety Report 9053996 (Version 1)
Quarter: 2013Q1

REPORT INFORMATION
  Report Type: Spontaneous
  Country: US (occurrence: US)
  Receive Date: 20130208
  Receipt Date: 20130208
  Transmission Date: 20140127
  Serious: No
  Sender: FDA-Public Use
  Company Number: US-B.I. PHARMACEUTICALS,INC./RIDGEFIELD-2013-BI-03412BP

PATIENT
  Age: 65 None
  Sex: Female
  Weight: 102 kg

DRUGS (11)
  1. TRADJENTA [Suspect]
     Indication: DIABETES MELLITUS
     Dosage: 5 MG
     Route: 048
     Dates: start: 20130124
  2. EXFORGE [Concomitant]
     Indication: HYPERTENSION
     Dosage: (TABLET) STRENGTH: 5/160 MG; DAILY DOSE: 5/160 MG
     Route: 048
  3. FUROSEMIDE [Concomitant]
     Dosage: 40 MG
     Route: 048
  4. ATORVASTATIN [Concomitant]
     Indication: BLOOD CHOLESTEROL INCREASED
     Dosage: 20 MG
     Route: 048
  5. LYRICA [Concomitant]
     Indication: NEURALGIA
     Dosage: 50 MG
     Route: 048
  6. FISH OIL [Concomitant]
     Route: 048
  7. MULTIVITAMINS [Concomitant]
     Route: 048
  8. CARVEDILOL [Concomitant]
     Dosage: 12.5 MG
     Route: 048
  9. D-3 [Concomitant]
     Dosage: 5000 MG
     Route: 048
  10. LEVEMIR INSULIN [Concomitant]
     Indication: DIABETES MELLITUS
     Route: 058
  11. CALCIUM [Concomitant]
     Dosage: 600 MG
     Route: 048

REACTIONS (1)
  - Oropharyngeal pain [Not Recovered/Not Resolved]
